FAERS Safety Report 6142598-1 (Version None)
Quarter: 2009Q2

REPORT INFORMATION
  Report Type: 
  Country: None (occurrence: None)
  Receive Date: 20090403
  Receipt Date: 20090326
  Transmission Date: 20091009
  Serious: Yes (Other)
  Sender: FDA-Public Use
  Company Number: US-BAYER-200910227BCC

PATIENT
  Age: 47 Year
  Sex: Female
  Weight: 100 kg

DRUGS (9)
  1. RID SHAMPOO [Suspect]
     Indication: LICE INFESTATION
     Route: 061
     Dates: start: 20090118
  2. BENADRYL [Concomitant]
  3. ARIPIPRAZOLE [Concomitant]
  4. BUPROPION HCL [Concomitant]
  5. CALCIUM CITRATE [Concomitant]
  6. ESCITALOPRAM OXALATE [Concomitant]
  7. LOPERAMIDE HCL [Concomitant]
  8. OMEPRAZOLE [Concomitant]
  9. SIMVASTATIN [Concomitant]

REACTIONS (4)
  - CORNEAL DISORDER [None]
  - EYE IRRITATION [None]
  - LICE INFESTATION [None]
  - SCOTOMA [None]
